FAERS Safety Report 10955655 (Version 1)
Quarter: 2015Q1

REPORT INFORMATION
  Report Type: Spontaneous
  Country: US (occurrence: None)
  Receive Date: 20150324
  Receipt Date: 20150324
  Transmission Date: 20150721
  Serious: Yes (Other)
  Sender: FDA-Public Use
  Company Number: 20150162

PATIENT
  Age: 22 Year
  Sex: Female

DRUGS (1)
  1. EPINEPHRINE INJECTION, USP (1071-25) 1 MG/ML [Suspect]
     Active Substance: EPINEPHRINE
     Indication: ANAPHYLACTIC REACTION
     Route: 040

REACTIONS (6)
  - Ventricular tachycardia [None]
  - Unresponsive to stimuli [None]
  - Overdose [None]
  - Chest pain [None]
  - Headache [None]
  - Myocardial ischaemia [None]
